FAERS Safety Report 9236164 (Version 1)
Quarter: 2013Q2

REPORT INFORMATION
  Report Type: Spontaneous
  Country: None (occurrence: US)
  Receive Date: 20130417
  Receipt Date: 20130417
  Transmission Date: 20140414
  Serious: Yes (Hospitalization, Other)
  Sender: FDA-Public Use
  Company Number: US-TEVA-398091USA

PATIENT
  Sex: 0

DRUGS (3)
  1. AZILECT [Suspect]
  2. CELEXA [Suspect]
  3. ANTIBIOTICS [Suspect]
     Indication: URINARY TRACT INFECTION

REACTIONS (2)
  - Urinary tract infection [Unknown]
  - Serotonin syndrome [Unknown]
